FAERS Safety Report 8218499-1 (Version None)
Quarter: 2012Q1

REPORT INFORMATION
  Report Type: 
  Country: None (occurrence: None)
  Receive Date: 20120319
  Receipt Date: 20120309
  Transmission Date: 20120608
  Serious: Yes (Hospitalization, Other)
  Sender: FDA-Public Use
  Company Number: US-ACTELION-A-US2012-60587

PATIENT

DRUGS (21)
  1. EXCEDRIN (MIGRAINE) [Concomitant]
  2. DIGOXIN [Concomitant]
  3. ADVAIR DISKUS 100/50 [Concomitant]
  4. FOLIC ACID [Concomitant]
  5. FUROSEMIDE [Concomitant]
  6. PROTONIX [Concomitant]
  7. CYCLOBENZAPRINE HCL [Concomitant]
  8. THIAMINE HCL [Concomitant]
  9. MIDODRINE HYDROCHLORIDE [Concomitant]
  10. ZOFRAN [Concomitant]
  11. COUMADIN [Concomitant]
  12. ALBUTEROL [Concomitant]
  13. OXYCODONE HCL [Concomitant]
  14. ALDACTONE [Concomitant]
  15. LANACANE [Concomitant]
  16. M.V.I. [Concomitant]
  17. UNASYN [Concomitant]
  18. EPOPROSTENOL SODIUM [Suspect]
     Indication: PORTOPULMONARY HYPERTENSION
     Dosage: 26 NG/KG, PER MIN
     Route: 042
     Dates: start: 20100614
  19. DIAZEPAM [Concomitant]
  20. LOPERAMIDE [Concomitant]
  21. OXYGEN [Concomitant]

REACTIONS (2)
  - ERYTHEMA [None]
  - CELLULITIS [None]
